FAERS Safety Report 8948664 (Version 1)
Quarter: 2012Q4

REPORT INFORMATION
  Report Type: 
  Country: AR (occurrence: AR)
  Receive Date: 20121206
  Receipt Date: 20121206
  Transmission Date: 20130627
  Serious: Yes (Hospitalization)
  Sender: FDA-Public Use
  Company Number: PHHY2012AR112051

PATIENT
  Age: 47 Year
  Sex: Female

DRUGS (1)
  1. DIOVAN D [Suspect]
     Indication: HYPERTENSION
     Dosage: 1 DF (160 mg vals/12.5 mg HCT) daily
     Route: 048
     Dates: start: 201210

REACTIONS (1)
  - Abasia [Recovering/Resolving]
